FAERS Safety Report 5792907-8 (Version None)
Quarter: 2008Q2

REPORT INFORMATION
  Report Type: 
  Country: None (occurrence: None)
  Receive Date: 20080627
  Receipt Date: 20071005
  Transmission Date: 20081010
  Serious: No
  Sender: FDA-Public Use
  Company Number: US-BAYER-US-2007-038018

PATIENT
  Age: 83 Year
  Sex: Male

DRUGS (1)
  1. ULTRAVIST (PHARMACY BULK) [Suspect]
     Indication: COMPUTERISED TOMOGRAM
     Dosage: UNIT DOSE: 150 ML
     Route: 042
     Dates: start: 20070823, end: 20070823

REACTIONS (1)
  - PHARYNGOLARYNGEAL DISCOMFORT [None]
